FAERS Safety Report 25986936 (Version 1)
Quarter: 2025Q4

REPORT INFORMATION
  Report Type: Spontaneous
  Country: EU (occurrence: EU)
  Receive Date: 20251102
  Receipt Date: 20251102
  Transmission Date: 20260118
  Serious: Yes (Other)
  Sender: JOHNSON AND JOHNSON
  Company Number: EU-TAKEDA-2025TUS081856

PATIENT
  Age: 22 Year
  Sex: Male
  Weight: 75 kg

DRUGS (7)
  1. INFLIXIMAB [Suspect]
     Active Substance: INFLIXIMAB
     Indication: Product used for unknown indication
     Dosage: UNK
     Route: 065
  2. ENTYVIO [Suspect]
     Active Substance: VEDOLIZUMAB
     Indication: Colitis ulcerative
     Dosage: 300 MILLIGRAM
     Dates: start: 20250320, end: 20250930
  3. ENTYVIO [Suspect]
     Active Substance: VEDOLIZUMAB
     Indication: Inflammatory bowel disease
  4. AMLODIPINE [Suspect]
     Active Substance: AMLODIPINE BESYLATE
     Indication: Blood pressure abnormal
     Dosage: 5 MILLIGRAM, QD
     Route: 065
     Dates: start: 20230815
  5. CANDESARTAN [Suspect]
     Active Substance: CANDESARTAN
     Indication: Blood pressure abnormal
     Dosage: 32 MILLIGRAM, QD
     Route: 065
     Dates: start: 20230925
  6. MESALAMINE [Suspect]
     Active Substance: MESALAMINE
     Indication: Product used for unknown indication
     Dosage: UNK
     Route: 065
  7. METHOTREXATE [Suspect]
     Active Substance: METHOTREXATE
     Indication: Product used for unknown indication
     Dosage: UNK
     Route: 065
     Dates: start: 202501

REACTIONS (15)
  - Cytomegalovirus infection reactivation [Recovered/Resolved]
  - General physical health deterioration [Unknown]
  - Oropharyngeal discomfort [Unknown]
  - Blood pressure fluctuation [Unknown]
  - Musculoskeletal discomfort [Unknown]
  - Drug effect less than expected [Unknown]
  - Abdominal pain upper [Unknown]
  - Brain fog [Unknown]
  - Hyperhidrosis [Unknown]
  - Rhinorrhoea [Unknown]
  - Dizziness [Unknown]
  - Paraesthesia [Unknown]
  - Headache [Unknown]
  - Back pain [Unknown]
  - Cough [Unknown]

NARRATIVE: CASE EVENT DATE: 20250101
